FAERS Safety Report 9054663 (Version 1)
Quarter: 2013Q1

REPORT INFORMATION
  Report Type: Spontaneous
  Country: US (occurrence: US)
  Receive Date: 20130208
  Receipt Date: 20130208
  Transmission Date: 20140127
  Serious: Yes (Other)
  Sender: FDA-Public Use
  Company Number: US-JNJFOC-20130117228

PATIENT
  Sex: Male
  Weight: 147.4 kg

DRUGS (13)
  1. REMICADE [Suspect]
     Indication: RHEUMATOID ARTHRITIS
     Route: 042
     Dates: start: 20120907
  2. TYLENOL [Concomitant]
     Route: 065
  3. PREDNISONE [Concomitant]
     Route: 065
  4. ARAVA [Concomitant]
     Route: 065
  5. UROXATRAL [Concomitant]
     Route: 065
  6. CLONIDINE [Concomitant]
     Route: 065
  7. WARFARIN [Concomitant]
     Route: 065
  8. METFORMIN [Concomitant]
     Route: 065
  9. POTASSIUM [Concomitant]
     Route: 065
  10. FLEXERIL [Concomitant]
     Route: 065
  11. NEURONTIN [Concomitant]
     Route: 065
  12. VERAPAMIL [Concomitant]
     Route: 065
  13. VALSARTAN [Concomitant]
     Route: 065

REACTIONS (1)
  - Atrial fibrillation [Not Recovered/Not Resolved]
